FAERS Safety Report 21786430 (Version 1)
Quarter: 2022Q4

REPORT INFORMATION
  Report Type: Spontaneous
  Country: SE (occurrence: SE)
  Receive Date: 20221228
  Receipt Date: 20221228
  Transmission Date: 20230112
  Serious: Yes (Other)
  Sender: FDA-Public Use
  Company Number: SE-MPA-2022-022204

PATIENT
  Age: 65 Year
  Sex: Female

DRUGS (4)
  1. NAPROXEN [Suspect]
     Active Substance: NAPROXEN
     Indication: Product used for unknown indication
     Dosage: 1000 MILLIGRAM, DAILY
     Route: 048
     Dates: start: 20200224
  2. ACETAMINOPHEN [Concomitant]
     Active Substance: ACETAMINOPHEN
     Indication: Product used for unknown indication
     Dosage: 4 GRAM, DAILY
     Route: 065
  3. FERROUS SULFATE [Concomitant]
     Active Substance: FERROUS SULFATE
     Indication: Product used for unknown indication
     Dosage: 100 MILLIGRAM, DAILY
     Route: 065
  4. HYDROCHLOROTHIAZIDE [Concomitant]
     Active Substance: HYDROCHLOROTHIAZIDE
     Indication: Product used for unknown indication
     Dosage: UNKNOWN, 0,5 X 1.
     Route: 065

REACTIONS (1)
  - Gastric ulcer [Recovered/Resolved]

NARRATIVE: CASE EVENT DATE: 20220101
